FAERS Safety Report 13976808 (Version 4)
Quarter: 2017Q4

REPORT INFORMATION
  Report Type: Report from Study
  Country: FR (occurrence: FR)
  Receive Date: 20170915
  Receipt Date: 20171012
  Transmission Date: 20180321
  Serious: Yes (Death, Hospitalization, Other)
  Sender: FDA-Public Use
  Company Number: FR-EISAI MEDICAL RESEARCH-EC-2017-031199

PATIENT
  Age: 10 Year
  Sex: Male
  Weight: 28.9 kg

DRUGS (4)
  1. LEVOTHYROX [Concomitant]
     Active Substance: LEVOTHYROXINE
  2. UVEDOSE [Concomitant]
     Active Substance: CHOLECALCIFEROL
  3. LENVATINIB [Suspect]
     Active Substance: LENVATINIB
     Indication: OSTEOSARCOMA
     Route: 048
     Dates: start: 20170601, end: 20170904
  4. KALEORID [Concomitant]
     Active Substance: POTASSIUM CHLORIDE

REACTIONS (2)
  - Proteinuria [Not Recovered/Not Resolved]
  - Respiratory distress [Fatal]

NARRATIVE: CASE EVENT DATE: 20170824
